FAERS Safety Report 7417111-9 (Version None)
Quarter: 2011Q2

REPORT INFORMATION
  Report Type: 
  Country: None (occurrence: None)
  Receive Date: 20110415
  Receipt Date: 20110202
  Transmission Date: 20111010
  Serious: No
  Sender: FDA-Public Use
  Company Number: US-B.I. PHARMACEUTICALS,INC./RIDGEFIELD-2011-BP-03761BP

PATIENT
  Age: 57 Year
  Sex: Male

DRUGS (4)
  1. METOPROLOL TARTRATE [Concomitant]
     Dates: start: 20110127
  2. PRADAXA [Suspect]
     Indication: ATRIAL FIBRILLATION
     Dosage: 300 MG
     Route: 048
     Dates: start: 20110126
  3. PRADAXA [Suspect]
     Indication: PROPHYLAXIS
  4. CITALOPRAM [Concomitant]

REACTIONS (1)
  - DISTURBANCE IN ATTENTION [None]
